FAERS Safety Report 10155479 (Version 2)
Quarter: 2014Q2

REPORT INFORMATION
  Report Type: Spontaneous
  Country: BE (occurrence: BE)
  Receive Date: 20140506
  Receipt Date: 20140506
  Transmission Date: 20141212
  Serious: Yes (Hospitalization, Other)
  Sender: FDA-Public Use
  Company Number: BE-BAYER-2014-035683

PATIENT
  Age: 70 Year
  Sex: Female

DRUGS (6)
  1. NEXAVAR [Suspect]
     Indication: RENAL CELL CARCINOMA STAGE IV
     Dosage: 400 MG, BID
     Route: 048
     Dates: start: 20130709, end: 20130920
  2. NEXAVAR [Suspect]
     Indication: METASTASES TO LUNG
     Dosage: 400 MG, QD
     Route: 048
     Dates: start: 20131022
  3. VENLAFAXINE [Concomitant]
     Indication: DEPRESSION
     Dosage: TTAL DAILY DOSE 75 MG
     Dates: start: 2011
  4. COVERSYL [Concomitant]
     Indication: HYPERTENSION
     Dosage: TOTAL DAILY DOSE 10 MG
     Dates: start: 1996, end: 20130920
  5. LASIX [Concomitant]
     Indication: HYPERTENSION
     Dosage: TOTAL DAILY DOSE 20 MG
     Dates: start: 2000, end: 20130920
  6. ZANIDIP [Concomitant]
     Indication: HYPERTENSION
     Dosage: TOTAL DAILY DOSE 20 MG
     Dates: start: 2002, end: 20130920

REACTIONS (7)
  - Posterior reversible encephalopathy syndrome [Recovered/Resolved]
  - Cerebral haemorrhage [None]
  - Brain injury [None]
  - Hypertension [Recovered/Resolved with Sequelae]
  - Dizziness [Recovered/Resolved]
  - Psychomotor retardation [Recovered/Resolved]
  - Brain oedema [Recovered/Resolved]
